FAERS Safety Report 25199339 (Version 2)
Quarter: 2025Q2

REPORT INFORMATION
  Report Type: Spontaneous
  Country: US (occurrence: US)
  Receive Date: 20250415
  Receipt Date: 20250527
  Transmission Date: 20250716
  Serious: Yes (Other)
  Sender: AMGEN
  Company Number: US-AMGEN-USASP2025070731

PATIENT
  Age: 86 Year
  Sex: Male
  Weight: 72.9 kg

DRUGS (1)
  1. REPATHA [Suspect]
     Active Substance: EVOLOCUMAB
     Indication: Hypercholesterolaemia
     Dosage: 140 MILLIGRAM, Q2WK, (FIRST AND FIFTEENTH OF EACH MONTH) (START DATE: WELL OVER A YEAR)
     Route: 058

REACTIONS (8)
  - Renal failure [Recovered/Resolved]
  - Post procedural sepsis [Recovered/Resolved]
  - Knee arthroplasty [Recovered/Resolved]
  - Staphylococcal infection [Recovered/Resolved]
  - Aortic valve replacement [Recovered/Resolved]
  - Weight decreased [Recovered/Resolved]
  - Norovirus infection [Recovered/Resolved]
  - Device difficult to use [Unknown]

NARRATIVE: CASE EVENT DATE: 20241011
